FAERS Safety Report 12314453 (Version 3)
Quarter: 2016Q2

REPORT INFORMATION
  Report Type: Spontaneous
  Country: CN (occurrence: CN)
  Receive Date: 20160428
  Receipt Date: 20160614
  Transmission Date: 20160815
  Serious: Yes (Hospitalization)
  Sender: FDA-Public Use
  Company Number: CN-GLAXOSMITHKLINE-CN2016GSK059607

PATIENT
  Age: 42 Month
  Sex: Female
  Weight: 17 kg

DRUGS (3)
  1. FLIXOTIDE INHALER [Suspect]
     Active Substance: FLUTICASONE PROPIONATE
     Indication: ASTHMA
     Dosage: UNK
     Route: 055
     Dates: start: 201601
  2. MONTELUKAST SODIUM. [Suspect]
     Active Substance: MONTELUKAST SODIUM
     Indication: ASTHMA
     Dosage: 1 UNK, QD
     Route: 048
     Dates: start: 201601
  3. PHYSIOLOGIC SALINE [Suspect]
     Active Substance: SODIUM CHLORIDE
     Indication: RHINITIS ALLERGIC
     Dosage: UNK
     Dates: start: 201601

REACTIONS (9)
  - Nasal congestion [Not Recovered/Not Resolved]
  - Underdose [Unknown]
  - Drug administered to patient of inappropriate age [Unknown]
  - Disease recurrence [Recovering/Resolving]
  - Wrong technique in product usage process [Unknown]
  - Asthma [Recovering/Resolving]
  - Rhinitis allergic [Recovering/Resolving]
  - Sinusitis [Unknown]
  - Nasopharyngitis [Recovered/Resolved]

NARRATIVE: CASE EVENT DATE: 201601
